FAERS Safety Report 6163891-2 (Version None)
Quarter: 2009Q2

REPORT INFORMATION
  Report Type: 
  Country: None (occurrence: None)
  Receive Date: 20090422
  Receipt Date: 20090414
  Transmission Date: 20091009
  Serious: Yes (Disabling, Other)
  Sender: FDA-Public Use
  Company Number: US-MERCK-0206USA02803

PATIENT
  Age: 62 Year
  Sex: Female
  Weight: 51 kg

DRUGS (6)
  1. FOSAMAX [Suspect]
     Indication: OSTEOPOROSIS
     Route: 048
     Dates: start: 19980311, end: 20011001
  2. FOSAMAX [Suspect]
     Route: 048
     Dates: start: 20011001, end: 20051101
  3. PREMARIN [Concomitant]
     Indication: OSTEOPOROSIS
     Route: 065
     Dates: start: 19910101
  4. PROVERA [Concomitant]
     Indication: OSTEOPOROSIS
     Route: 065
     Dates: start: 19910101
  5. CALCIUM (UNSPECIFIED) [Concomitant]
     Route: 065
     Dates: end: 19980301
  6. CALCIUM (UNSPECIFIED) [Concomitant]
     Route: 048
     Dates: start: 19980301

REACTIONS (34)
  - ABSCESS [None]
  - ADVERSE EVENT [None]
  - ARTHRALGIA [None]
  - AUTONOMIC NERVOUS SYSTEM IMBALANCE [None]
  - BACK INJURY [None]
  - BONE PAIN [None]
  - COUGH [None]
  - DENTAL CARIES [None]
  - DRUG INTOLERANCE [None]
  - ENDOMETRIOSIS [None]
  - EXOSTOSIS [None]
  - FACIAL NEURALGIA [None]
  - FIBROMYALGIA [None]
  - FISTULA DISCHARGE [None]
  - HYPOGLYCAEMIA [None]
  - HYPOTENSION [None]
  - HYPOXIA [None]
  - IMPAIRED HEALING [None]
  - INCONTINENCE [None]
  - INSOMNIA [None]
  - JAW DISORDER [None]
  - LIP NEOPLASM [None]
  - MENISCUS LESION [None]
  - MUSCULOSKELETAL PAIN [None]
  - ORAL CAVITY FISTULA [None]
  - ORAL DISORDER [None]
  - ORAL TORUS [None]
  - OSTEOMYELITIS [None]
  - OSTEONECROSIS [None]
  - PAIN IN EXTREMITY [None]
  - SYNCOPE [None]
  - TOOTH ABSCESS [None]
  - TRIGEMINAL NEURALGIA [None]
  - WEIGHT DECREASED [None]
